FAERS Safety Report 24977114 (Version 1)
Quarter: 2025Q1

REPORT INFORMATION
  Report Type: Spontaneous
  Country: PL (occurrence: PL)
  Receive Date: 20250217
  Receipt Date: 20250217
  Transmission Date: 20250409
  Serious: Yes (Hospitalization)
  Sender: MYLAN
  Company Number: PL-ZENTIVA-2025-ZT-027469

PATIENT
  Age: 77 Year
  Sex: Female
  Weight: 53.6 kg

DRUGS (3)
  1. ESOMEPRAZOLE [Suspect]
     Active Substance: ESOMEPRAZOLE
     Indication: Product used for unknown indication
     Dosage: 20 MILLIGRAM, QD (24 HOURS,20 MILLIGRAM 1-0-0)
     Route: 065
  2. HYDROCHLOROTHIAZIDE [Suspect]
     Active Substance: HYDROCHLOROTHIAZIDE
     Indication: Product used for unknown indication
     Dosage: 12.5 MILLIGRAM, QD (24 HOURS,12.5 MILLIGRAM 1-0-0)
     Route: 065
  3. ZOFENOPRIL [Concomitant]
     Active Substance: ZOFENOPRIL
     Dosage: 30 MILLIGRAM, QD
     Route: 065

REACTIONS (7)
  - Swelling [Recovering/Resolving]
  - Hyponatraemia [Unknown]
  - Disturbance in attention [Recovering/Resolving]
  - Thirst [Unknown]
  - Nausea [Recovering/Resolving]
  - Confusional state [Recovering/Resolving]
  - Headache [Recovering/Resolving]
